FAERS Safety Report 20484517 (Version 3)
Quarter: 2022Q1

REPORT INFORMATION
  Report Type: Spontaneous
  Country: RU (occurrence: RU)
  Receive Date: 20220217
  Receipt Date: 20220331
  Transmission Date: 20220423
  Serious: Yes (Hospitalization)
  Sender: FDA-Public Use
  Company Number: RU-VERTEX PHARMACEUTICALS-2022-002780

PATIENT
  Age: 14 Year
  Sex: Male

DRUGS (1)
  1. ORKAMBI [Suspect]
     Active Substance: IVACAFTOR\LUMACAFTOR
     Indication: Cystic fibrosis
     Dosage: 1 TABLET (200MG LUMACAFTOR/125MG IVACAFTOR)
     Route: 048

REACTIONS (6)
  - Cystic fibrosis [Recovered/Resolved]
  - Sweat test abnormal [Recovered/Resolved]
  - Faecal fat increased [Recovered/Resolved]
  - Weight decreased [Recovered/Resolved]
  - Blood bilirubin decreased [Recovered/Resolved]
  - Diarrhoea [Recovered/Resolved]

NARRATIVE: CASE EVENT DATE: 20211106
